FAERS Safety Report 7209545-2 (Version None)
Quarter: 2011Q1

REPORT INFORMATION
  Report Type: 
  Country: None (occurrence: None)
  Receive Date: 20110104
  Receipt Date: 20110103
  Transmission Date: 20110831
  Serious: Yes (Hospitalization, Other)
  Sender: FDA-Public Use
  Company Number: IT-AMGEN-ITASP2010006127

PATIENT

DRUGS (6)
  1. NPLATE [Suspect]
     Indication: IDIOPATHIC THROMBOCYTOPENIC PURPURA
     Dosage: 660 A?G, QWK
     Route: 058
     Dates: start: 20100427, end: 20101110
  2. PAROXETINA [Concomitant]
     Dosage: 20 MG, QD
     Dates: start: 20090101
  3. URBASON                            /00049601/ [Concomitant]
  4. TRANEX [Concomitant]
     Dosage: 500 MG, TID
     Route: 048
     Dates: start: 20101106
  5. LANSOX [Concomitant]
     Dosage: 30 MG, QD
     Dates: start: 20090101
  6. CACIT                              /00108001/ [Concomitant]
     Dosage: 1000 MG, QD
     Dates: start: 20090101

REACTIONS (7)
  - ANAEMIA [None]
  - THERAPEUTIC RESPONSE DECREASED [None]
  - HYPOTENSION [None]
  - LOSS OF CONSCIOUSNESS [None]
  - ASTHENIA [None]
  - HAEMOLYSIS [None]
  - THROMBOCYTOSIS [None]
